FAERS Safety Report 13015538 (Version 3)
Quarter: 2017Q2

REPORT INFORMATION
  Report Type: Spontaneous
  Country: SG (occurrence: SG)
  Receive Date: 20161212
  Receipt Date: 20170615
  Transmission Date: 20170830
  Serious: Yes (Death, Hospitalization, Other)
  Sender: FDA-Public Use
  Company Number: SG-009507513-1612SGP004216

PATIENT
  Age: 81 Year
  Sex: Female
  Weight: 53 kg

DRUGS (23)
  1. BACTROBAN [Concomitant]
     Active Substance: MUPIROCIN\MUPIROCIN CALCIUM
     Dosage: 12 TIMES DAILY
     Route: 061
     Dates: start: 20161022, end: 20161028
  2. LINEZOLID. [Concomitant]
     Active Substance: LINEZOLID
     Dosage: 600 MG, 1 TIME DAILY
     Route: 048
     Dates: start: 20161021, end: 20161027
  3. MEROPENEM. [Concomitant]
     Active Substance: MEROPENEM
     Dosage: 1 G, 3 TIMES DAILY
     Route: 042
     Dates: start: 20161023, end: 20161028
  4. NOREPINEPHRINE. [Concomitant]
     Active Substance: NOREPINEPHRINE
     Indication: SEPSIS
     Dosage: UNK
     Route: 042
     Dates: start: 20161103, end: 20161108
  5. AMIODARONE [Concomitant]
     Active Substance: AMIODARONE
     Dosage: 200 MG, QD
     Route: 048
     Dates: start: 20161021, end: 20161027
  6. PIPERACILLIN AND TAZOBACTAM [Concomitant]
     Active Substance: PIPERACILLIN SODIUM\TAZOBACTAM SODIUM
     Indication: PYREXIA
     Dosage: 4.5 G, 3 TIMES DAILY
     Route: 042
     Dates: start: 20061101, end: 20161104
  7. FILGRASTIM [Concomitant]
     Active Substance: FILGRASTIM
     Dosage: 300 MG, ONCE
     Route: 042
     Dates: start: 20161024
  8. METOCLOPRAMIDE. [Concomitant]
     Active Substance: METOCLOPRAMIDE
     Indication: NAUSEA
     Dosage: 10 MG, 4 TIMES DAILY
     Route: 042
     Dates: start: 20161104, end: 20161114
  9. ACETAMINOPHEN. [Concomitant]
     Active Substance: ACETAMINOPHEN
     Dosage: 500 MG, 4 TIMES DAILY
     Route: 048
     Dates: start: 20161022, end: 20161028
  10. METOCLOPRAMIDE. [Concomitant]
     Active Substance: METOCLOPRAMIDE
     Indication: VOMITING
  11. AVELOX [Concomitant]
     Active Substance: MOXIFLOXACIN HYDROCHLORIDE
     Indication: SEPSIS
     Dosage: 400 MG, ONCE
     Route: 042
     Dates: start: 20161104, end: 20161104
  12. MEGESTROL ACETATE. [Concomitant]
     Active Substance: MEGESTROL ACETATE
     Dosage: 160 MG, 1 TIME DAILY
     Route: 048
     Dates: start: 20161020, end: 20161028
  13. VALACYCLOVIR HYDROCHLORIDE. [Concomitant]
     Active Substance: VALACYCLOVIR HYDROCHLORIDE
     Dosage: 1.5 G, 2 TIMES DAILY
     Route: 048
     Dates: start: 20161021, end: 20161028
  14. KEYTRUDA [Suspect]
     Active Substance: PEMBROLIZUMAB
     Indication: PERIPHERAL T-CELL LYMPHOMA UNSPECIFIED
     Dosage: 100 MG 1 TIME
     Route: 042
     Dates: start: 20161022, end: 20161022
  15. CARVEDILOL. [Concomitant]
     Active Substance: CARVEDILOL
     Dosage: 6.25 MG, 2 TIMES DAILY
     Route: 048
     Dates: start: 20161020, end: 20161022
  16. HYDROCORTISONE. [Concomitant]
     Active Substance: HYDROCORTISONE
     Indication: SEPSIS
     Dosage: 500 MG, 3 TIMES DAILY
     Route: 042
     Dates: start: 20161104, end: 20161106
  17. RANITIDINE. [Concomitant]
     Active Substance: RANITIDINE
     Indication: PREMEDICATION
     Dosage: 50 MG, UNK
     Route: 042
  18. DIPHENHYDRAMINE. [Concomitant]
     Active Substance: DIPHENHYDRAMINE
     Indication: PREMEDICATION
     Dosage: 25 MG, UNK
     Route: 042
  19. AMIODARONE [Concomitant]
     Active Substance: AMIODARONE
     Indication: ATRIAL FIBRILLATION
     Dosage: 150 MG, 4 TIMES DAILY
     Route: 042
     Dates: start: 20161103, end: 20161107
  20. DESMOPRESSIN [Concomitant]
     Active Substance: DESMOPRESSIN
     Dosage: 10 MICROGRAM, 2 TIMES DAILY
     Dates: start: 20161026, end: 20161028
  21. ESOMEPRAZOLE MAGNESIUM. [Concomitant]
     Active Substance: ESOMEPRAZOLE MAGNESIUM
     Dosage: 40 MG, 1 TIME DAILY
     Route: 042
     Dates: start: 20161020, end: 20161028
  22. SITAGLIPTIN PHOSPHATE [Concomitant]
     Active Substance: SITAGLIPTIN PHOSPHATE
     Dosage: 100 MG, 1 TIME DAILY
     Dates: start: 20161020, end: 20161028
  23. VALACYCLOVIR HYDROCHLORIDE. [Concomitant]
     Active Substance: VALACYCLOVIR HYDROCHLORIDE
     Dosage: 500 MG, 2 TIMES DAILY
     Route: 042
     Dates: start: 20161020, end: 20161021

REACTIONS (2)
  - Product use in unapproved indication [Unknown]
  - Toxic epidermal necrolysis [Fatal]

NARRATIVE: CASE EVENT DATE: 20161105
